FAERS Safety Report 18711232 (Version 1)
Quarter: 2021Q1

REPORT INFORMATION
  Report Type: Spontaneous
  Country: US (occurrence: US)
  Receive Date: 20210107
  Receipt Date: 20210107
  Transmission Date: 20210419
  Serious: Yes (Life-Threatening, Hospitalization, Other)
  Sender: FDA-Public Use
  Company Number: US-MACLEODS PHARMACEUTICALS US LTD-MAC2020029689

PATIENT

DRUGS (11)
  1. KETAMINE [Suspect]
     Active Substance: KETAMINE
     Dosage: 3 UG/KG/MIN (3?5 ?G/KG/MIN)
     Route: 065
  2. SUFENTANIL [Suspect]
     Active Substance: SUFENTANIL
     Indication: MAINTENANCE OF ANAESTHESIA
     Dosage: 0.1 MICROGRAM/KILOGRAM, Q.H. (0.1?0.5 ?G/KG/HR)
     Route: 065
  3. LIDOCAINE. [Suspect]
     Active Substance: LIDOCAINE
     Indication: MAINTENANCE OF ANAESTHESIA
     Dosage: 2 MG/MINUTE
     Route: 065
  4. PROPOFOL. [Suspect]
     Active Substance: PROPOFOL
     Indication: MAINTENANCE OF ANAESTHESIA
     Dosage: 50 UG/KG /MIN (25?50 ?G/KG/MIN)
     Route: 065
  5. ISOFLURANE. [Suspect]
     Active Substance: ISOFLURANE
     Indication: MAINTENANCE OF ANAESTHESIA
     Dosage: UNK
     Route: 065
  6. SUFENTANIL [Suspect]
     Active Substance: SUFENTANIL
     Dosage: 0.5 MICROGRAM/KILOGRAM, Q.H. (0.1?0.5 ?G/KG/HR)
     Route: 065
  7. LOSARTAN. [Concomitant]
     Active Substance: LOSARTAN
     Indication: HYPERTENSION
     Dosage: UNK
     Route: 065
  8. TRAMADOL. [Concomitant]
     Active Substance: TRAMADOL
     Indication: ORAL PAIN
     Dosage: UNK
     Route: 065
  9. PROPOFOL. [Suspect]
     Active Substance: PROPOFOL
     Dosage: 25 UG/KG /MIN (25?50 ?G/KG/MIN)
     Route: 065
  10. KETAMINE [Suspect]
     Active Substance: KETAMINE
     Indication: MAINTENANCE OF ANAESTHESIA
     Dosage: 5 UG/KG/MIN (3?5 ?G/KG/MIN)
     Route: 065
  11. ISOFLURANE. [Suspect]
     Active Substance: ISOFLURANE
     Indication: MAINTENANCE OF ANAESTHESIA
     Dosage: UNK
     Route: 065

REACTIONS (1)
  - Vasoplegia syndrome [Recovered/Resolved]
